FAERS Safety Report 24159306 (Version 1)
Quarter: 2024Q3

REPORT INFORMATION
  Report Type: Spontaneous
  Country: US (occurrence: US)
  Receive Date: 20240731
  Receipt Date: 20240731
  Transmission Date: 20241017
  Serious: Yes (Hospitalization)
  Sender: COVIS PHARMA
  Company Number: US-Covis Pharma Europe B.V.-2024COV00930

PATIENT
  Sex: Female

DRUGS (1)
  1. ALVESCO [Suspect]
     Active Substance: CICLESONIDE
     Route: 055

REACTIONS (2)
  - Hospitalisation [Unknown]
  - Product dose omission issue [Unknown]
